FAERS Safety Report 17125373 (Version 1)
Quarter: 2019Q4

REPORT INFORMATION
  Report Type: Spontaneous
  Country: SE (occurrence: SE)
  Receive Date: 20191207
  Receipt Date: 20191207
  Transmission Date: 20200122
  Serious: Yes (Hospitalization)
  Sender: FDA-Public Use
  Company Number: SE-ACCORD-163736

PATIENT
  Sex: Male

DRUGS (3)
  1. LERGIGAN (PROMETHAZINE HYDROCHLORIDE) [Suspect]
     Active Substance: PROMETHAZINE HYDROCHLORIDE
     Dosage: A FIST ALLERGY 25 MG MAYBE 10 PIECES
     Route: 048
     Dates: start: 20181005, end: 20181005
  2. PROPAVAN [Suspect]
     Active Substance: PROPIOMAZINE
     Dosage: 4 PROPAVAN
     Route: 048
     Dates: start: 20181005, end: 20181005
  3. SERTRALINE [Suspect]
     Active Substance: SERTRALINE HYDROCHLORIDE
     Dosage: 4 SERTRALINE
     Route: 048
     Dates: start: 20181005, end: 20181005

REACTIONS (3)
  - Somnolence [Unknown]
  - Intentional overdose [Unknown]
  - Chest discomfort [Unknown]

NARRATIVE: CASE EVENT DATE: 20181005
